FAERS Safety Report 8600422-9 (Version None)
Quarter: 2012Q3

REPORT INFORMATION
  Report Type: 
  Country: None (occurrence: None)
  Receive Date: 20120802
  Receipt Date: 20120726
  Transmission Date: 20120928
  Serious: Yes (Life-Threatening)
  Sender: FDA-Public Use
  Company Number: TCI2012A03944

PATIENT
  Age: 71 Year
  Sex: Female

DRUGS (13)
  1. RHYTHMY (RILMAZAFONE HYDROCHLORIDE) [Concomitant]
  2. BI SIFROL (PRAMIPEXOLE DIHYDROCHLORIDE) [Suspect]
     Indication: PARKINSON'S DISEASE
     Dosage: PER ORAL,  0.375 MG (0.125 MG,3 IN 1 D)   PER ORAL
     Route: 048
     Dates: start: 20120601, end: 20120716
  3. BI SIFROL (PRAMIPEXOLE DIHYDROCHLORIDE) [Suspect]
     Indication: PARKINSON'S DISEASE
     Dosage: PER ORAL,  0.375 MG (0.125 MG,3 IN 1 D)   PER ORAL
     Route: 048
     Dates: start: 20120405, end: 20120601
  4. CELECOXIB [Suspect]
     Indication: BACK PAIN
     Dosage: 200 MG (100 MG,2 IN 1 D)  PER ORAL
     Route: 048
     Dates: start: 20120626, end: 20120716
  5. SYMMETREL [Concomitant]
  6. GASMOTIN (MOSAPRIDE CITRATE) [Concomitant]
  7. MADOPAR (LEVODOPA, BENSERAZIDE HYDROCHLORIDE) [Concomitant]
  8. MAGMITT (MAGNESIUM OXIDE) [Concomitant]
  9. LANSOPRAZOLE [Suspect]
     Indication: EPIGASTRIC DISCOMFORT
     Dosage: PER ORAL, 15 MG (15 MG, 1 IN 1 D), PER ORAL,  30 MG (30 MG, 1 IN 1 D)  PER ORAL
     Route: 048
     Dates: start: 20120510, end: 20120709
  10. LANSOPRAZOLE [Suspect]
     Indication: EPIGASTRIC DISCOMFORT
     Dosage: PER ORAL, 15 MG (15 MG, 1 IN 1 D), PER ORAL,  30 MG (30 MG, 1 IN 1 D)  PER ORAL
     Route: 048
     Dates: start: 20120710, end: 20120716
  11. MUCOSTA (RESAMIPIDE) [Concomitant]
  12. LOXONIN TAPE (LOXOPROPEN SODIUM) [Concomitant]
  13. DEPAS (ETIZOLAM) [Concomitant]

REACTIONS (7)
  - RHABDOMYOLYSIS [None]
  - EPIGASTRIC DISCOMFORT [None]
  - MOVEMENT DISORDER [None]
  - HEART RATE DECREASED [None]
  - FALL [None]
  - BACK PAIN [None]
  - TREMOR [None]
